FAERS Safety Report 12771317 (Version 1)
Quarter: 2016Q3

REPORT INFORMATION
  Report Type: Spontaneous
  Country: US (occurrence: US)
  Receive Date: 20160922
  Receipt Date: 20160922
  Transmission Date: 20161109
  Serious: No
  Sender: FDA-Public Use
  Company Number: US-TARO-2016TAR00039

PATIENT
  Age: 5 Year
  Sex: Male
  Weight: 19.48 kg

DRUGS (4)
  1. LORATADINE SYRUP (LORATADINE ORAL SOLUTION USP) 5MG/5ML [Suspect]
     Active Substance: LORATADINE
     Dosage: 1 TSP, 1X/DAY
     Route: 048
     Dates: start: 20160115
  2. LORATADINE SYRUP (LORATADINE ORAL SOLUTION USP) 5MG/5ML [Suspect]
     Active Substance: LORATADINE
     Dosage: 1 TSP, 1X/DAY
     Route: 048
     Dates: start: 20160112, end: 20160112
  3. LORATADINE SYRUP (LORATADINE ORAL SOLUTION USP) 5MG/5ML [Suspect]
     Active Substance: LORATADINE
     Indication: HYPERSENSITIVITY
     Dosage: 1 TSP, 2X/DAY
     Route: 048
     Dates: start: 20160113, end: 20160113
  4. FLONASE [Concomitant]
     Active Substance: FLUTICASONE PROPIONATE
     Dosage: 1 SQUIRT IN EACH NOSTRIL AT NIGHT
     Route: 045

REACTIONS (3)
  - Somnolence [Recovered/Resolved]
  - Wrong drug administered [Recovered/Resolved]
  - Accidental overdose [Recovered/Resolved]

NARRATIVE: CASE EVENT DATE: 20160113
